FAERS Safety Report 23676881 (Version 1)
Quarter: 2024Q1

REPORT INFORMATION
  Report Type: Report from Study
  Country: US (occurrence: US)
  Receive Date: 20240327
  Receipt Date: 20240327
  Transmission Date: 20240410
  Serious: Yes (Other)
  Sender: FDA-Public Use
  Company Number: US-SA-SAC20211103000611

PATIENT
  Age: 33 Year
  Sex: Male

DRUGS (2)
  1. EFTRENONACOG ALFA [Suspect]
     Active Substance: EFTRENONACOG ALFA
     Indication: Factor IX deficiency
     Dosage: 6000 IU, QW
     Route: 042
     Dates: start: 20180414
  2. EFTRENONACOG ALFA [Suspect]
     Active Substance: EFTRENONACOG ALFA
     Indication: Factor IX deficiency
     Dosage: 6000 IU, QW
     Route: 042
     Dates: start: 20180414

REACTIONS (2)
  - Spontaneous haemorrhage [Recovering/Resolving]
  - Intercepted product dispensing error [Unknown]

NARRATIVE: CASE EVENT DATE: 20211025
